FAERS Safety Report 6148784-9 (Version None)
Quarter: 2009Q2

REPORT INFORMATION
  Report Type: 
  Country: None (occurrence: None)
  Receive Date: 20090408
  Receipt Date: 20090331
  Transmission Date: 20091009
  Serious: Yes (Death, Other)
  Sender: FDA-Public Use
  Company Number: CA-ELI_LILLY_AND_COMPANY-CA200811003329

PATIENT
  Sex: Male

DRUGS (32)
  1. ZYPREXA ZYDIS [Suspect]
     Dosage: 5 MG, AS NEEDED
     Route: 048
  2. OLANZAPINE [Concomitant]
     Dosage: 2.5 MG, DAILY (1/D)
     Route: 048
  3. OLANZAPINE [Concomitant]
     Dosage: 2.5 MG, 2/D
     Route: 048
     Dates: end: 20080801
  4. OLANZAPINE [Concomitant]
     Dosage: 5 MG, EACH MORNING
     Route: 048
     Dates: start: 20080801
  5. OLANZAPINE [Concomitant]
     Dosage: 2.5 MG, EACH EVENING
     Route: 048
     Dates: start: 20080801
  6. ASPIRIN [Concomitant]
     Dosage: 81 MG, UNK
  7. ATROVENT [Concomitant]
  8. FLOMAX [Concomitant]
  9. FLOVENT [Concomitant]
  10. GABAPENTIN [Concomitant]
     Dosage: 100 MG, UNK
  11. PALAFER [Concomitant]
  12. SENOKOT [Concomitant]
  13. SPIRIVA [Concomitant]
  14. ZANTAC [Concomitant]
  15. ACETAMINOPHEN [Concomitant]
     Dosage: 500 MG, UNK
  16. CEFUROXIME [Concomitant]
  17. ERYTHROMYCIN [Concomitant]
  18. NITROGLYCERIN [Concomitant]
     Route: 062
  19. LACTULOSE [Concomitant]
  20. NOVO-METOPROLOL [Concomitant]
     Dosage: 25 MG, UNK
  21. OMEPRAZOLE [Concomitant]
  22. SALBUTAMOL [Concomitant]
  23. ZOPICLONE [Concomitant]
     Dosage: 3.75 MG, UNK
  24. RANITIDINE [Concomitant]
  25. SEROQUEL [Concomitant]
     Dosage: 25 MG, 2/D
  26. NOVO-NORFLOXACIN [Concomitant]
     Dosage: 400 MG, UNK
  27. AVELOX [Concomitant]
     Dosage: 400 MG, UNK
  28. CIPROFLOXACIN [Concomitant]
     Dosage: 500 MG, UNK
  29. CIPROFLOXACIN [Concomitant]
     Dosage: 250 MG, UNK
     Dates: start: 20080827
  30. BACID [Concomitant]
     Dosage: UNK, 2/D
  31. APO-FERROUS SULFATE [Concomitant]
     Dosage: 300 MG, UNK
  32. TEAR-GEL [Concomitant]
     Route: 047

REACTIONS (2)
  - CEREBROVASCULAR ACCIDENT [None]
  - PULMONARY OEDEMA [None]
